FAERS Safety Report 12884271 (Version 4)
Quarter: 2017Q2

REPORT INFORMATION
  Report Type: Spontaneous
  Country: US (occurrence: US)
  Receive Date: 20161026
  Receipt Date: 20170622
  Transmission Date: 20170830
  Serious: Yes (Other)
  Sender: FDA-Public Use
  Company Number: US-PFIZER INC-2016496805

PATIENT
  Age: 51 Year
  Sex: Female
  Weight: 122 kg

DRUGS (15)
  1. ATENOLOL. [Concomitant]
     Active Substance: ATENOLOL
     Indication: HEART RATE ABNORMAL
     Dosage: 25 MG, ONCE A DAY
     Dates: start: 200801
  2. XELJANZ [Suspect]
     Active Substance: TOFACITINIB CITRATE
     Indication: RHEUMATOID ARTHRITIS
     Dosage: 5 MG, TWICE A DAY
     Route: 048
     Dates: start: 2014
  3. GABAPENTIN. [Concomitant]
     Active Substance: GABAPENTIN
     Indication: NEURALGIA
  4. ATENOLOL. [Concomitant]
     Active Substance: ATENOLOL
     Indication: RESPIRATORY DISORDER
  5. METFORMIN [Concomitant]
     Active Substance: METFORMIN HYDROCHLORIDE
     Indication: TYPE 2 DIABETES MELLITUS
     Dosage: 1000 MG, DAILY (500 MG TABLETS, TAKES 2 AT NIGHT)
     Dates: start: 2016
  6. HUMALOG [Concomitant]
     Active Substance: INSULIN LISPRO
     Indication: TYPE 2 DIABETES MELLITUS
     Dosage: QUICKPEN 75/25 MIX, 15 UNITS THIS IS BASED ON SLIDING SCALE AT BREAKFAST AND DINNER
     Dates: start: 201610
  7. METHOTREXATE. [Suspect]
     Active Substance: METHOTREXATE
     Indication: RHEUMATOID ARTHRITIS
     Dosage: 5 MG, WEEKLY (INJECTING 5 MG ONCE A WEEK INTO TUMMY)
     Dates: start: 201604, end: 201609
  8. LEVOTHYROXINE. [Concomitant]
     Active Substance: LEVOTHYROXINE
     Indication: THYROID DISORDER
     Dosage: 112 UG, ONCE A DAY
     Dates: start: 2004
  9. OXYCONTIN [Concomitant]
     Active Substance: OXYCODONE HYDROCHLORIDE
     Indication: NEURALGIA
     Dosage: 60 MG, DAILY (20 MG TABLET TAKE 1 IN THE MORNING AND 2 AT NIGHT)
     Dates: start: 2000
  10. HYDROCORTISONE. [Concomitant]
     Active Substance: HYDROCORTISONE
     Indication: ADRENAL INSUFFICIENCY
     Dosage: 15 MG, DAILY (5 MG TABLETS, TAKE 2 IN THE MORNING AND 1 IN THE AFTERNOON)
     Dates: start: 201006
  11. METFORMIN [Concomitant]
     Active Substance: METFORMIN HYDROCHLORIDE
     Dosage: 2000 MG, DAILY (BUILDING UP TO 4 TABLETS)
     Dates: start: 201609
  12. AZATHIOPRINE. [Concomitant]
     Active Substance: AZATHIOPRINE
     Indication: RHEUMATOID ARTHRITIS
     Dosage: 100 MG, DAILY (50 MG TABLETS, TAKES 2 EVERY NIGHT)
     Dates: start: 2015
  13. GABAPENTIN. [Concomitant]
     Active Substance: GABAPENTIN
     Indication: NEUROPATHY PERIPHERAL
     Dosage: 1500 MG, TWICE A DAY
     Dates: start: 201006
  14. HYDROCORTISONE. [Concomitant]
     Active Substance: HYDROCORTISONE
     Dosage: UNK
     Dates: start: 201006
  15. FOLIC ACID. [Concomitant]
     Active Substance: FOLIC ACID
     Indication: ROUTINE HEALTH MAINTENANCE
     Dosage: 1 MCG, ONCE A DAY (TAKES 1 EVERY MORNING)
     Dates: start: 2013

REACTIONS (5)
  - Ear infection [Unknown]
  - White blood cell count decreased [Unknown]
  - Alopecia [Recovering/Resolving]
  - Staphylococcal infection [Unknown]
  - Muscle spasms [Recovering/Resolving]

NARRATIVE: CASE EVENT DATE: 201606
